APPROVED DRUG PRODUCT: PROPOXYPHENE HYDROCHLORIDE
Active Ingredient: PROPOXYPHENE HYDROCHLORIDE
Strength: 65MG
Dosage Form/Route: CAPSULE;ORAL
Application: A040908 | Product #001
Applicant: VINTAGE PHARMACEUTICALS INC
Approved: Jul 17, 2009 | RLD: No | RS: No | Type: DISCN